FAERS Safety Report 12729031 (Version 1)
Quarter: 2016Q3

REPORT INFORMATION
  Report Type: Spontaneous
  Country: TW (occurrence: TW)
  Receive Date: 20160909
  Receipt Date: 20160909
  Transmission Date: 20161109
  Serious: Yes (Death, Other)
  Sender: FDA-Public Use
  Company Number: TW-TAKEDA-2016TUS016052

PATIENT
  Age: 4 Decade
  Sex: Male

DRUGS (2)
  1. FEBURIC [Suspect]
     Active Substance: FEBUXOSTAT
     Indication: GOUT
     Dosage: 40 MG, QD
     Route: 048
     Dates: start: 201605, end: 201608
  2. MIDODRINE [Concomitant]
     Active Substance: MIDODRINE
     Indication: PROCEDURAL HYPOTENSION
     Dosage: 5 MG, QD
     Route: 048
     Dates: start: 201607, end: 2016

REACTIONS (3)
  - Procedural hypotension [Unknown]
  - Stevens-Johnson syndrome [Fatal]
  - Rash [Fatal]

NARRATIVE: CASE EVENT DATE: 201607
